FAERS Safety Report 5464743-3 (Version None)
Quarter: 2007Q3

REPORT INFORMATION
  Report Type: 
  Country: None (occurrence: None)
  Receive Date: 20070820
  Receipt Date: 20070612
  Transmission Date: 20080115
  Serious: No
  Sender: FDA-Public Use
  Company Number: TPA2007A00717

PATIENT
  Age: 44 Year
  Sex: Female
  Weight: 81.6475 kg

DRUGS (5)
  1. ROZEREM [Suspect]
     Indication: POSTOPERATIVE CARE
     Dosage: AS REQUIRED, PER ORAL
     Route: 048
     Dates: start: 20070411
  2. CELEBREX [Concomitant]
  3. EFFEXOR XR [Concomitant]
  4. ESTRACE [Concomitant]
  5. LORTAB ELIXIR (PARACETAMOL, HYDROCODONE BITARTRATE) [Concomitant]

REACTIONS (3)
  - ANXIETY [None]
  - MIDDLE INSOMNIA [None]
  - PAIN IN EXTREMITY [None]
